FAERS Safety Report 24109783 (Version 4)
Quarter: 2024Q3

REPORT INFORMATION
  Report Type: Spontaneous
  Country: US (occurrence: US)
  Receive Date: 20240718
  Receipt Date: 20240920
  Transmission Date: 20241016
  Serious: No
  Sender: PFIZER
  Company Number: US-PFIZER INC-PV202400093570

PATIENT
  Age: 51 Year
  Sex: Female

DRUGS (2)
  1. IBRANCE [Suspect]
     Active Substance: PALBOCICLIB
     Dosage: 3-WEEK CYCLE
     Dates: start: 20240621
  2. ANASTROZOLE [Concomitant]
     Active Substance: ANASTROZOLE

REACTIONS (6)
  - Fatigue [Not Recovered/Not Resolved]
  - Diarrhoea [Unknown]
  - Insomnia [Unknown]
  - Bone pain [Not Recovered/Not Resolved]
  - Back pain [Unknown]
  - Constipation [Unknown]

NARRATIVE: CASE EVENT DATE: 20240101
